FAERS Safety Report 11750256 (Version 1)
Quarter: 2015Q4

REPORT INFORMATION
  Report Type: Spontaneous
  Country: US (occurrence: None)
  Receive Date: 20151117
  Receipt Date: 20151117
  Transmission Date: 20160304
  Serious: No
  Sender: FDA-Public Use
  Company Number: None

PATIENT
  Age: 71 Year
  Sex: Male
  Weight: 59.1 kg

DRUGS (3)
  1. APIXABAN [Suspect]
     Active Substance: APIXABAN
     Indication: PULMONARY EMBOLISM
     Route: 048
     Dates: start: 20151016, end: 20151018
  2. ASPIRIN. [Suspect]
     Active Substance: ASPIRIN
     Indication: POLYCYTHAEMIA VERA
     Route: 048
     Dates: start: 20150918
  3. APIXABAN [Suspect]
     Active Substance: APIXABAN
     Indication: DEEP VEIN THROMBOSIS
     Route: 048
     Dates: start: 20151016, end: 20151018

REACTIONS (1)
  - Mouth haemorrhage [None]

NARRATIVE: CASE EVENT DATE: 20151018
